FAERS Safety Report 17166220 (Version 1)
Quarter: 2019Q4

REPORT INFORMATION
  Report Type: Spontaneous
  Country: US (occurrence: US)
  Receive Date: 20191217
  Receipt Date: 20191217
  Transmission Date: 20200122
  Serious: Yes (Hospitalization)
  Sender: FDA-Public Use
  Company Number: None

PATIENT
  Age: 85 Year
  Sex: Female

DRUGS (8)
  1. TYMLOS [Suspect]
     Active Substance: ABALOPARATIDE
     Indication: OSTEOPOROSIS
     Route: 058
     Dates: start: 20180509
  2. FUROSEMIDE. [Concomitant]
     Active Substance: FUROSEMIDE
  3. CALCIUM-VITAMIN D [Concomitant]
     Active Substance: CALCIUM\VITAMIN D
  4. ARMOUR THYROID [Concomitant]
     Active Substance: THYROID, PORCINE
  5. LISINOPRIL. [Concomitant]
     Active Substance: LISINOPRIL
  6. RASUVO [Concomitant]
     Active Substance: METHOTREXATE SODIUM
  7. METOPROLOL. [Concomitant]
     Active Substance: METOPROLOL
  8. HYDROXYCHLOROQUINE [Concomitant]
     Active Substance: HYDROXYCHLOROQUINE

REACTIONS (1)
  - Ulcer [None]

NARRATIVE: CASE EVENT DATE: 20191216
